FAERS Safety Report 26153978 (Version 1)
Quarter: 2025Q4

REPORT INFORMATION
  Report Type: Spontaneous
  Country: CN (occurrence: CN)
  Receive Date: 20251215
  Receipt Date: 20251215
  Transmission Date: 20260117
  Serious: Yes (Life-Threatening, Hospitalization, Other)
  Sender: AUROBINDO
  Company Number: CN-MLMSERVICE-20251124-PI724379-00327-1

PATIENT
  Age: 31 Year
  Sex: Male

DRUGS (10)
  1. LEVETIRACETAM [Interacting]
     Active Substance: LEVETIRACETAM
     Indication: Seizure prophylaxis
     Dosage: 125 MILLIGRAM, ONCE A DAY
     Route: 065
  2. LEVETIRACETAM [Interacting]
     Active Substance: LEVETIRACETAM
     Indication: Epilepsy
     Dosage: 250 MILLIGRAM, ONCE A DAY
     Route: 065
  3. VALPROIC ACID [Interacting]
     Active Substance: VALPROIC ACID
     Indication: Seizure prophylaxis
     Dosage: 500 MILLIGRAM, 3 TIMES A DAY
     Route: 065
  4. VALPROIC ACID [Interacting]
     Active Substance: VALPROIC ACID
     Indication: Epilepsy
  5. CLONAZEPAM [Suspect]
     Active Substance: CLONAZEPAM
     Indication: Psychiatric symptom
     Dosage: 0.5 MILLIGRAM, 3 TIMES A DAY
     Route: 061
  6. CLONAZEPAM [Suspect]
     Active Substance: CLONAZEPAM
     Dosage: 1 MILLIGRAM, 3 TIMES A DAY
     Route: 061
  7. ARIPIPRAZOLE [Suspect]
     Active Substance: ARIPIPRAZOLE
     Indication: Psychiatric symptom
     Dosage: 2.5 MILLIGRAM, ONCE A DAY
     Route: 061
  8. ARIPIPRAZOLE [Suspect]
     Active Substance: ARIPIPRAZOLE
     Dosage: 5 MILLIGRAM, DAILY
     Route: 061
  9. DEXTRAN [Concomitant]
     Active Substance: DEXTRAN
     Indication: Anaemia
     Dosage: UNK
     Route: 065
  10. IRON [Concomitant]
     Active Substance: IRON
     Indication: Anaemia
     Dosage: UNK
     Route: 065

REACTIONS (4)
  - Thrombocytopenia [Recovered/Resolved]
  - Potentiating drug interaction [Recovered/Resolved]
  - Anticonvulsant drug level increased [Unknown]
  - Drug interaction [Unknown]
